FAERS Safety Report 22202490 (Version 1)
Quarter: 2023Q2

REPORT INFORMATION
  Report Type: Spontaneous
  Country: US (occurrence: None)
  Receive Date: 20230412
  Receipt Date: 20230412
  Transmission Date: 20230722
  Serious: Yes (Life-Threatening, Disabling, Other)
  Sender: FDA-Public Use
  Company Number: None

PATIENT
  Age: 38 Year
  Sex: Female
  Weight: 49.5 kg

DRUGS (5)
  1. CELEBREX [Suspect]
     Active Substance: CELECOXIB
     Indication: Pain
     Dates: start: 20230309, end: 20230311
  2. GABAPENTIN [Concomitant]
     Active Substance: GABAPENTIN
  3. busbar [Concomitant]
  4. ZYPREXA [Concomitant]
     Active Substance: OLANZAPINE
  5. KEPPRA [Concomitant]
     Active Substance: LEVETIRACETAM

REACTIONS (8)
  - Nausea [None]
  - Chest pain [None]
  - Cardiac disorder [None]
  - Pain [None]
  - Vomiting [None]
  - Headache [None]
  - Toxicity to various agents [None]
  - Hypokinesia [None]

NARRATIVE: CASE EVENT DATE: 20230309
